FAERS Safety Report 13573943 (Version 3)
Quarter: 2018Q2

REPORT INFORMATION
  Report Type: Spontaneous
  Country: US (occurrence: US)
  Receive Date: 20170523
  Receipt Date: 20180615
  Transmission Date: 20180711
  Serious: Yes (Hospitalization)
  Sender: FDA-Public Use
  Company Number: US-ASTRAZENECA-2017SE52441

PATIENT
  Age: 71 Year
  Sex: Male
  Weight: 93 kg

DRUGS (1)
  1. SYMBICORT [Suspect]
     Active Substance: BUDESONIDE\FORMOTEROL FUMARATE DIHYDRATE
     Indication: ASTHMA
     Dosage: 160/4.5MCG, TWO INHALATIONS TWICE DAILY
     Route: 055
     Dates: start: 2012

REACTIONS (10)
  - Tremor [Unknown]
  - Off label use [Unknown]
  - Chest discomfort [Unknown]
  - Nervousness [Unknown]
  - Memory impairment [Unknown]
  - Product quality issue [Unknown]
  - Extrasystoles [Unknown]
  - Cholelithiasis [Unknown]
  - Condition aggravated [Unknown]
  - Underdose [Unknown]

NARRATIVE: CASE EVENT DATE: 2016
